FAERS Safety Report 11172645 (Version 1)
Quarter: 2015Q2

REPORT INFORMATION
  Report Type: Report from Study
  Country: US (occurrence: US)
  Receive Date: 20150608
  Receipt Date: 20150608
  Transmission Date: 20150821
  Serious: No
  Sender: FDA-Public Use
  Company Number: US-AMGEN-USASL2015034460

PATIENT
  Age: 92 Year
  Sex: Female

DRUGS (2)
  1. EPOGEN [Concomitant]
     Active Substance: ERYTHROPOIETIN
     Dosage: UNK
  2. PROCRIT [Suspect]
     Active Substance: ERYTHROPOIETIN
     Indication: ANAEMIA
     Dosage: 20,0000 UNITS, EVERY 2 WEEKS
     Route: 065

REACTIONS (3)
  - Fatigue [Unknown]
  - Sluggishness [Unknown]
  - Apathy [Unknown]

NARRATIVE: CASE EVENT DATE: 2015
